FAERS Safety Report 7278241-8 (Version None)
Quarter: 2011Q1

REPORT INFORMATION
  Report Type: 
  Country: None (occurrence: None)
  Receive Date: 20110131
  Receipt Date: 20110108
  Transmission Date: 20110831
  Serious: Yes (Hospitalization)
  Sender: FDA-Public Use
  Company Number: 2011-0194

PATIENT
  Age: 76 Year
  Sex: Female

DRUGS (1)
  1. APO-GO AMPOULES (APOMORPHINE HYDROCHLORIDE) [Suspect]
     Dosage: 1.2ML AND A BOLUS OF 0.6ML (1.2 ML, NOT REPORTED), SUBCUTANEOUS
     Route: 058
     Dates: start: 20100805, end: 20100101

REACTIONS (1)
  - DRUG INEFFECTIVE [None]
